FAERS Safety Report 4695514-3 (Version None)
Quarter: 2005Q2

REPORT INFORMATION
  Report Type: 
  Country: None (occurrence: None)
  Receive Date: 20050620
  Receipt Date: 20050620
  Transmission Date: 20051028
  Serious: Yes (Life-Threatening, Hospitalization)
  Sender: FDA-Public Use
  Company Number: None

PATIENT
  Sex: Male
  Weight: 85.2762 kg

DRUGS (1)
  1. PRIMAXIN [Suspect]
     Indication: PNEUMONIA ASPIRATION
     Dosage: 500MG   Q 6HR   INTRAVENOU
     Route: 042
     Dates: start: 20050529, end: 20050606

REACTIONS (2)
  - DRUG HYPERSENSITIVITY [None]
  - STEVENS-JOHNSON SYNDROME [None]
